FAERS Safety Report 6959590-7 (Version None)
Quarter: 2010Q3

REPORT INFORMATION
  Report Type: 
  Country: None (occurrence: None)
  Receive Date: 20100830
  Receipt Date: 20100819
  Transmission Date: 20110219
  Serious: Yes (Hospitalization, Other)
  Sender: FDA-Public Use
  Company Number: CIP08002862

PATIENT
  Age: 53 Year
  Sex: Female
  Weight: 97.2 kg

DRUGS (3)
  1. ACTONEL [Suspect]
     Indication: OSTEOPENIA
     Dosage: 35 MG ONCE WEEKLY, ORAL
     Route: 048
     Dates: start: 20070129, end: 20071016
  2. ACTONEL [Suspect]
     Indication: OSTEOPOROSIS
     Dosage: 35 MG ONCE WEEKLY, ORAL
     Route: 048
     Dates: start: 20070129, end: 20071016
  3. NORVASC /00972401/ (AMLODIPINE) [Concomitant]

REACTIONS (49)
  - ABDOMINAL PAIN [None]
  - ALOPECIA [None]
  - ANAEMIA [None]
  - ARRHYTHMIA [None]
  - ARTHRALGIA [None]
  - ASPIRATION [None]
  - ASTHENIA [None]
  - BACK PAIN [None]
  - BONE PAIN [None]
  - CHOKING [None]
  - CONSTIPATION [None]
  - DEPRESSION [None]
  - DIARRHOEA HAEMORRHAGIC [None]
  - DRUG HYPERSENSITIVITY [None]
  - DYSPHAGIA [None]
  - DYSPHONIA [None]
  - DYSURIA [None]
  - EYE PAIN [None]
  - FEELING HOT [None]
  - FLASHBACK [None]
  - GASTRIC ULCER [None]
  - GASTROINTESTINAL SOUNDS ABNORMAL [None]
  - GINGIVAL PAIN [None]
  - HAEMATEMESIS [None]
  - HAEMORRHAGE [None]
  - HEADACHE [None]
  - HEARING IMPAIRED [None]
  - HEPATIC NEOPLASM [None]
  - HIATUS HERNIA [None]
  - HYPOVENTILATION [None]
  - INSOMNIA [None]
  - JOINT SWELLING [None]
  - LOWER GASTROINTESTINAL HAEMORRHAGE [None]
  - LUNG DISORDER [None]
  - MYALGIA [None]
  - NAUSEA [None]
  - OBSTRUCTIVE AIRWAYS DISORDER [None]
  - OESOPHAGEAL PAIN [None]
  - OESOPHAGEAL STENOSIS [None]
  - OESOPHAGITIS ULCERATIVE [None]
  - OROPHARYNGEAL PAIN [None]
  - PAIN [None]
  - PAIN IN EXTREMITY [None]
  - PAIN IN JAW [None]
  - RECTAL HAEMORRHAGE [None]
  - RESPIRATORY RATE INCREASED [None]
  - SYNCOPE [None]
  - TONGUE DISORDER [None]
  - VULVOVAGINAL PAIN [None]
